FAERS Safety Report 17032106 (Version 1)
Quarter: 2019Q4

REPORT INFORMATION
  Report Type: Spontaneous
  Country: GR (occurrence: GR)
  Receive Date: 20191114
  Receipt Date: 20191114
  Transmission Date: 20200122
  Serious: Yes (Other)
  Sender: FDA-Public Use
  Company Number: GR-MYLANLABS-2019M1109069

PATIENT
  Age: 75 Year
  Sex: Female

DRUGS (2)
  1. LOSARTAN. [Concomitant]
     Active Substance: LOSARTAN
     Dosage: 100 MILLIGRAM, QD
     Route: 065
  2. LEVETIRACETAM. [Suspect]
     Active Substance: LEVETIRACETAM
     Indication: EPILEPSY
     Dosage: 1000 MG, UNK
     Route: 065

REACTIONS (6)
  - Syncope [Unknown]
  - Bundle branch block [Unknown]
  - Atrioventricular block second degree [Unknown]
  - Electrocardiogram QT interval abnormal [Unknown]
  - Atrioventricular block first degree [Unknown]
  - Generalised tonic-clonic seizure [Unknown]
